FAERS Safety Report 23897049 (Version 1)
Quarter: 2024Q2

REPORT INFORMATION
  Report Type: Spontaneous
  Country: US (occurrence: None)
  Receive Date: 20240524
  Receipt Date: 20240524
  Transmission Date: 20240716
  Serious: Yes (Disabling, Other)
  Sender: FDA-Public Use
  Company Number: None

PATIENT
  Age: 63 Year
  Sex: Male
  Weight: 81 kg

DRUGS (4)
  1. ROSUVASTATIN [Suspect]
     Active Substance: ROSUVASTATIN
     Indication: Cardiac disorder
     Dosage: 1 TABLET DAILY ORAL?
     Route: 048
  2. AMLODIPINE [Concomitant]
     Active Substance: AMLODIPINE BESYLATE
  3. ELIQUIS [Concomitant]
     Active Substance: APIXABAN
  4. OMEPRAZOLE [Concomitant]
     Active Substance: DONEPEZIL HYDROCHLORIDE\OMEPRAZOLE\OMEPRAZOLE MAGNESIUM

REACTIONS (5)
  - Dyspnoea [None]
  - Myalgia [None]
  - Cachexia [None]
  - Asthenia [None]
  - Memory impairment [None]

NARRATIVE: CASE EVENT DATE: 20240523
